FAERS Safety Report 8494575 (Version 3)
Quarter: 2013Q3

REPORT INFORMATION
  Report Type: Report from Study
  Country: GB (occurrence: GB)
  Receive Date: 20120404
  Receipt Date: 20130828
  Transmission Date: 20140515
  Serious: Yes (Hospitalization, Other)
  Sender: FDA-Public Use
  Company Number: PHHO2009GB14309

PATIENT
  Age: 65 Year
  Sex: Male
  Weight: 83 kg

DRUGS (14)
  1. METFORMIN [Suspect]
  2. ACETYLSALICYLIC ACID [Suspect]
  3. ALISKIREN [Suspect]
     Indication: CARDIOVASCULAR DISORDER
     Dosage: UNK
     Route: 048
     Dates: start: 20090512, end: 20091112
  4. ALISKIREN [Suspect]
     Dosage: UNK
     Route: 048
     Dates: start: 20091117
  5. RAMIPRIL [Concomitant]
  6. FENOFIBRATE [Concomitant]
  7. ALLOPURINOL [Concomitant]
  8. ATORVASTATIN [Concomitant]
  9. ATENOLOL [Concomitant]
  10. NIFEDIPINE [Concomitant]
  11. EZETIMIBE [Concomitant]
  12. NOVORAPID [Concomitant]
  13. INSULIN GLARGINE [Concomitant]
  14. SILDENAFIL [Concomitant]

REACTIONS (17)
  - Renal failure chronic [Recovering/Resolving]
  - Blood creatinine increased [Recovering/Resolving]
  - Renal impairment [Recovering/Resolving]
  - Haematocrit decreased [Unknown]
  - Adenoma benign [Recovering/Resolving]
  - Dysplasia [Unknown]
  - Gastrointestinal inflammation [Unknown]
  - Duodenitis [Recovering/Resolving]
  - Oesophagitis [Recovering/Resolving]
  - Gastrointestinal haemorrhage [Unknown]
  - Haemorrhage [Recovering/Resolving]
  - Haemoglobin decreased [Unknown]
  - Red blood cell count decreased [Unknown]
  - Melaena [Recovering/Resolving]
  - Pallor [Recovering/Resolving]
  - Lethargy [Recovering/Resolving]
  - Malaise [Unknown]
